FAERS Safety Report 26175439 (Version 1)
Quarter: 2025Q4

REPORT INFORMATION
  Report Type: Spontaneous
  Country: EU (occurrence: EU)
  Receive Date: 20251218
  Receipt Date: 20251218
  Transmission Date: 20260117
  Serious: Yes (Other)
  Sender: AMGEN
  Company Number: EU-009507513-2359454

PATIENT
  Sex: Female

DRUGS (7)
  1. BEVACIZUMAB [Suspect]
     Active Substance: BEVACIZUMAB
     Indication: Ovarian cancer stage IV
     Dosage: UNK
     Route: 065
     Dates: start: 202406, end: 20250505
  2. KEYTRUDA [Suspect]
     Active Substance: PEMBROLIZUMAB
     Indication: Product used for unknown indication
     Dosage: UNK
     Route: 065
     Dates: start: 20251208
  3. OLAPARIB [Suspect]
     Active Substance: OLAPARIB
     Indication: Product used for unknown indication
     Dosage: UNK
     Route: 065
     Dates: start: 202406, end: 202505
  4. CARBOPLATIN [Suspect]
     Active Substance: CARBOPLATIN
     Indication: Ovarian cancer stage IV
     Dosage: UNK
     Route: 065
     Dates: start: 202401, end: 202405
  5. TAXOL [Suspect]
     Active Substance: PACLITAXEL
     Indication: Ovarian cancer stage IV
     Dosage: UNK
     Route: 065
     Dates: start: 202401, end: 202405
  6. GEMZAR [Suspect]
     Active Substance: GEMCITABINE HYDROCHLORIDE
     Indication: Product used for unknown indication
     Dosage: UNK
     Route: 065
     Dates: start: 202509, end: 202511
  7. ELIQUIS [Concomitant]
     Active Substance: APIXABAN
     Indication: Product used for unknown indication
     Dosage: 10 MILLIGRAM, QD
     Route: 065

REACTIONS (6)
  - Malignant neoplasm progression [Unknown]
  - Ascites [Unknown]
  - Fatigue [Unknown]
  - Pruritus [Unknown]
  - Drug effect less than expected [Unknown]
  - Feeling abnormal [Unknown]

NARRATIVE: CASE EVENT DATE: 20250501
